FAERS Safety Report 6048897-6 (Version None)
Quarter: 2009Q1

REPORT INFORMATION
  Report Type: 
  Country: None (occurrence: None)
  Receive Date: 20090123
  Receipt Date: 20090113
  Transmission Date: 20090719
  Serious: Yes (Other)
  Sender: FDA-Public Use
  Company Number: FR-SANOFI-SYNTHELABO-A01200710948

PATIENT
  Sex: Male

DRUGS (7)
  1. PERINDOPRIL [Concomitant]
     Dosage: UNK
  2. SOTALOL HCL [Concomitant]
     Dosage: UNK
  3. ROSUVASTATIN CALCIUM [Concomitant]
     Dosage: UNK
  4. ELIGARD [Suspect]
     Route: 058
     Dates: start: 20070825, end: 20070825
  5. ELIGARD [Suspect]
     Route: 058
     Dates: start: 20071001, end: 20071001
  6. ELIGARD [Suspect]
     Route: 058
     Dates: start: 20071029, end: 20071029
  7. ELIGARD [Suspect]
     Route: 058
     Dates: start: 20081006, end: 20081006

REACTIONS (4)
  - INJECTION SITE INDURATION [None]
  - INJECTION SITE INFLAMMATION [None]
  - INJECTION SITE NECROSIS [None]
  - INJECTION SITE ULCER [None]
